FAERS Safety Report 5501537-4 (Version None)
Quarter: 2007Q4

REPORT INFORMATION
  Report Type: 
  Country: None (occurrence: None)
  Receive Date: 20071030
  Receipt Date: 20071022
  Transmission Date: 20080405
  Serious: Yes (Death)
  Sender: FDA-Public Use
  Company Number: US-ELI_LILLY_AND_COMPANY-US200708006759

PATIENT
  Sex: Male
  Weight: 79.819 kg

DRUGS (5)
  1. ZYPREXA [Suspect]
     Indication: AGITATION
     Dosage: 10 MG, UNK
  2. AMPHETAMINE AND DEXTROAMPHETAMINE SALTS [Concomitant]
  3. KLONOPIN [Concomitant]
     Indication: ANXIETY
     Dates: start: 20050301
  4. DIOVAN [Concomitant]
     Indication: HYPERTENSION
     Dates: start: 20050301
  5. TIAZAC [Concomitant]
     Indication: HYPERTENSION
     Dates: start: 20050301

REACTIONS (2)
  - DEATH [None]
  - INTENTIONAL OVERDOSE [None]
